FAERS Safety Report 7440186-8 (Version None)
Quarter: 2011Q2

REPORT INFORMATION
  Report Type: 
  Country: None (occurrence: None)
  Receive Date: 20110427
  Receipt Date: 20110418
  Transmission Date: 20111010
  Serious: Yes (Other)
  Sender: FDA-Public Use
  Company Number: IT-ROCHE-773217

PATIENT

DRUGS (2)
  1. RIBAVIRIN [Suspect]
     Dosage: DOSE: AS PER GENOTYPE AND BODY WEIGHT, FREQUENCY: DAILY
     Route: 065
  2. PEGINTERFERON ALFA-2A [Suspect]
     Route: 058

REACTIONS (1)
  - THYROTOXIC CRISIS [None]
